FAERS Safety Report 16059678 (Version 1)
Quarter: 2019Q1

REPORT INFORMATION
  Report Type: Spontaneous
  Country: IL (occurrence: IL)
  Receive Date: 20190311
  Receipt Date: 20190311
  Transmission Date: 20190418
  Serious: Yes (Life-Threatening, Hospitalization)
  Sender: FDA-Public Use
  Company Number: PHHY2019IL054292

PATIENT
  Age: 68 Year
  Sex: Female

DRUGS (1)
  1. GLIVEC [Suspect]
     Active Substance: IMATINIB MESYLATE
     Indication: CHRONIC MYELOID LEUKAEMIA
     Dosage: UNK
     Route: 065

REACTIONS (10)
  - Lip swelling [Unknown]
  - Skin haemorrhage [Unknown]
  - Pruritus [Unknown]
  - Eating disorder [Unknown]
  - Mouth ulceration [Unknown]
  - Feeling abnormal [Unknown]
  - Dysuria [Unknown]
  - Peripheral swelling [Unknown]
  - Glossodynia [Unknown]
  - Skin exfoliation [Unknown]
